FAERS Safety Report 8166128-8 (Version None)
Quarter: 2012Q1

REPORT INFORMATION
  Report Type: 
  Country: None (occurrence: None)
  Receive Date: 20120227
  Receipt Date: 20110328
  Transmission Date: 20120608
  Serious: No
  Sender: FDA-Public Use
  Company Number: US-MYLANLABS-2011S1006570

PATIENT
  Sex: Female

DRUGS (1)
  1. AMNESTEEM [Suspect]
     Dates: end: 20110301

REACTIONS (3)
  - SYNCOPE [None]
  - GASTROENTERITIS [None]
  - CONCUSSION [None]
